FAERS Safety Report 7444596-4 (Version None)
Quarter: 2011Q2

REPORT INFORMATION
  Report Type: 
  Country: None (occurrence: None)
  Receive Date: 20110427
  Receipt Date: 20110427
  Transmission Date: 20111010
  Serious: Yes (Other)
  Sender: FDA-Public Use
  Company Number: None

PATIENT
  Age: 36 Year
  Sex: Female
  Weight: 61.2356 kg

DRUGS (1)
  1. VITAMIN D [Suspect]
     Indication: VITAMIN D DECREASED
     Dosage: 50,000IU ONCE A WEEK PO
     Route: 048
     Dates: start: 20110201, end: 20110412

REACTIONS (12)
  - JOINT SWELLING [None]
  - JOINT STIFFNESS [None]
  - ARTHRALGIA [None]
  - MUSCULOSKELETAL PAIN [None]
  - OSTEOARTHRITIS [None]
  - MUSCULOSKELETAL STIFFNESS [None]
  - ERYTHEMA [None]
  - OEDEMA PERIPHERAL [None]
  - ECONOMIC PROBLEM [None]
  - PAIN IN EXTREMITY [None]
  - IMPAIRED WORK ABILITY [None]
  - CARPAL TUNNEL SYNDROME [None]
